FAERS Safety Report 4319605-1 (Version None)
Quarter: 2004Q1

REPORT INFORMATION
  Report Type: 
  Country: None (occurrence: None)
  Receive Date: 20040319
  Receipt Date: 20040310
  Transmission Date: 20041129
  Serious: Yes (Death)
  Sender: FDA-Public Use
  Company Number: JP-BRISTOL-MYERS SQUIBB COMPANY-12530416

PATIENT
  Age: 67 Year
  Sex: Male

DRUGS (2)
  1. PARAPLATIN [Suspect]
     Indication: HYPOPHARYNGEAL CANCER
     Route: 013
  2. RANDA [Suspect]
     Indication: HYPOPHARYNGEAL CANCER
     Route: 013

REACTIONS (3)
  - PNEUMONIA [None]
  - SEPSIS [None]
  - STAPHYLOCOCCAL SEPSIS [None]
